FAERS Safety Report 5338487-2 (Version None)
Quarter: 2007Q2

REPORT INFORMATION
  Report Type: 
  Country: None (occurrence: None)
  Receive Date: 20070405
  Receipt Date: 20061107
  Transmission Date: 20071010
  Serious: No
  Sender: FDA-Public Use
  Company Number: US200611002135

PATIENT
  Age: 43 Year
  Sex: Female

DRUGS (5)
  1. CYMBALTA [Suspect]
     Indication: BIPOLAR I DISORDER
     Dosage: SEE IMAGE
     Route: 048
     Dates: start: 20060501, end: 20060101
  2. CYMBALTA [Suspect]
     Indication: BIPOLAR I DISORDER
     Dosage: SEE IMAGE
     Route: 048
     Dates: start: 20060101
  3. LAMICTAL [Concomitant]
  4. GEODON [Concomitant]
  5. ATIVAN [Concomitant]

REACTIONS (1)
  - AKATHISIA [None]
